FAERS Safety Report 8764540 (Version 1)
Quarter: 2012Q4

REPORT INFORMATION
  Report Type: 
  Country: CN (occurrence: CN)
  Receive Date: 20120831
  Receipt Date: 20120831
  Transmission Date: 20130627
  Serious: Yes (Death)
  Sender: FDA-Public Use
  Company Number: CN-BAXTER-2012BAX015750

PATIENT

DRUGS (3)
  1. ENDOXAN [Suspect]
     Indication: LUPUS NEPHRITIS
     Dosage: 0.5-0.75 G/M^2
     Route: 042
  2. PREDNISOLONE [Suspect]
     Indication: LUPUS NEPHRITIS
     Dosage: 0.8-1.0 MG/KG
     Route: 048
  3. PREDNISOLONE [Suspect]

REACTIONS (1)
  - Pneumonia [Fatal]
